FAERS Safety Report 13273180 (Version 12)
Quarter: 2020Q4

REPORT INFORMATION
  Report Type: Spontaneous
  Country: CA (occurrence: CA)
  Receive Date: 20170227
  Receipt Date: 20201012
  Transmission Date: 20210113
  Serious: Yes (Hospitalization, Other)
  Sender: FDA-Public Use
  Company Number: CA-PFIZER INC-2016021110

PATIENT
  Age: 37 Year
  Sex: Male

DRUGS (30)
  1. VOLTAREN [Concomitant]
     Active Substance: DICLOFENAC SODIUM
     Indication: ARTHRALGIA
     Dosage: UNK
  2. TYLENOL EXTRA STRENGTH [Concomitant]
     Active Substance: ACETAMINOPHEN
     Dosage: 600 MG, AS NEEDED (SEVERAL TABLETS ALMOST DAILY)
     Route: 048
  3. NAPROXEN SODIUM. [Concomitant]
     Active Substance: NAPROXEN SODIUM
     Indication: ARTHRALGIA
     Dosage: 500 MG, 2X/DAY
     Dates: start: 202006
  4. SOMAVERT [Suspect]
     Active Substance: PEGVISOMANT
     Dosage: 20 MG, DAILY
     Route: 058
     Dates: start: 2020
  5. SANDOSTATIN LAR DEPOT [Concomitant]
     Active Substance: OCTREOTIDE ACETATE
     Dosage: 20 MG, MONTHLY
     Route: 030
     Dates: start: 2000, end: 2019
  6. AMITRIPTYLINE [Concomitant]
     Active Substance: AMITRIPTYLINE
     Indication: ARTHRALGIA
     Dosage: 10 MG
     Dates: start: 202006, end: 2020
  7. SOMAVERT [Suspect]
     Active Substance: PEGVISOMANT
     Dosage: 20 MG,  (5X/WEEK)
     Route: 058
  8. SOMAVERT [Suspect]
     Active Substance: PEGVISOMANT
     Dosage: 20 MG, DAILY 5X/WEEKLY (ON WEEKDAYS)
     Route: 058
     Dates: start: 20171212, end: 2019
  9. XARELTO [Concomitant]
     Active Substance: RIVAROXABAN
     Dosage: UNK
     Dates: start: 201606
  10. CORTEF [Concomitant]
     Active Substance: HYDROCORTISONE
     Dosage: 30 TO 35MG DAILY ON SOME DAYS
     Route: 048
     Dates: start: 201707
  11. ASA [Concomitant]
     Active Substance: ASPIRIN
     Dosage: 81 MG, DAILY
     Route: 048
     Dates: start: 2014
  12. NAPROXEN SODIUM. [Concomitant]
     Active Substance: NAPROXEN SODIUM
     Indication: MYALGIA
  13. TYLENOL EXTRA STRENGTH [Concomitant]
     Active Substance: ACETAMINOPHEN
     Dosage: 2-4 DF, DAILY
     Route: 048
  14. CORTEF [Concomitant]
     Active Substance: HYDROCORTISONE
     Dosage: 20 MG, DAILY(15 MG MORNING, 5 MG 15:00)
     Route: 048
  15. ASPIRIN. [Concomitant]
     Active Substance: ASPIRIN
     Dosage: 81 MG, DAILY
     Route: 048
     Dates: start: 2016
  16. SOMAVERT [Suspect]
     Active Substance: PEGVISOMANT
     Indication: ACROMEGALY
     Dosage: 20 MG, (THREE TIMES PER WEEK)
     Route: 058
     Dates: start: 20150616
  17. SOMAVERT [Suspect]
     Active Substance: PEGVISOMANT
     Dosage: 20 MG, DAILY
     Route: 058
     Dates: start: 20170731
  18. SANDOSTATIN LAR DEPOT [Concomitant]
     Active Substance: OCTREOTIDE ACETATE
     Dosage: UNK
     Route: 065
     Dates: start: 201909
  19. TYLENOL EXTRA STRENGTH [Concomitant]
     Active Substance: ACETAMINOPHEN
     Dosage: 8-10 DF, DAILY
     Route: 048
     Dates: start: 201707
  20. TYLENOL EXTRA STRENGTH [Concomitant]
     Active Substance: ACETAMINOPHEN
     Dosage: 650 MG, 2 TO 10 TIMES PER DAY AS NEEDED (PRN)
     Route: 048
  21. SANDOSTATIN [Concomitant]
     Active Substance: OCTREOTIDE ACETATE
     Dosage: 20 MG, EVERY 4WEEKS/30 DAYS
     Route: 030
     Dates: start: 2001
  22. SOMAVERT [Suspect]
     Active Substance: PEGVISOMANT
     Dosage: 20 MG, DAILY 5X/WEEKLY (ON WEEKDAYS)
     Route: 058
     Dates: start: 20190503, end: 2019
  23. CORTISOL [Concomitant]
     Active Substance: HYDROCORTISONE
     Dosage: UNK
  24. VOLTAREN [Concomitant]
     Active Substance: DICLOFENAC SODIUM
     Indication: BONE PAIN
  25. DELATESTRYL [Concomitant]
     Active Substance: TESTOSTERONE ENANTHATE
     Dosage: 100 MG, EVERY FRIDAY
     Route: 030
     Dates: start: 20170804
  26. SANDOSTATIN [Concomitant]
     Active Substance: OCTREOTIDE ACETATE
     Dosage: UNK
     Dates: start: 201909
  27. AMITRIPTYLINE [Concomitant]
     Active Substance: AMITRIPTYLINE
     Indication: MYALGIA
     Dosage: 20 MG
     Dates: start: 2020
  28. SOMAVERT [Suspect]
     Active Substance: PEGVISOMANT
     Dosage: ALTERNATING DOSE, DAILY
     Route: 058
     Dates: end: 201711
  29. CORTEF [Concomitant]
     Active Substance: HYDROCORTISONE
     Dosage: 20 MG, DAILY
     Route: 048
  30. DELATESTRYL [Concomitant]
     Active Substance: TESTOSTERONE ENANTHATE
     Dosage: 0.5 ML, WEEKLY(100 MG EVERY WEEK ON FRIDAYS)
     Route: 030

REACTIONS (8)
  - Intentional product misuse [Unknown]
  - Off label use [Unknown]
  - Therapeutic product effect variable [Unknown]
  - Pulmonary embolism [Recovered/Resolved]
  - Off label use [Unknown]
  - Drug ineffective [Not Recovered/Not Resolved]
  - Injection site bruising [Unknown]
  - Needle issue [Unknown]

NARRATIVE: CASE EVENT DATE: 20150616
